FAERS Safety Report 22962187 (Version 2)
Quarter: 2024Q2

REPORT INFORMATION
  Report Type: Spontaneous
  Country: CA (occurrence: CA)
  Receive Date: 20230920
  Receipt Date: 20240620
  Transmission Date: 20240716
  Serious: Yes (Other)
  Sender: FDA-Public Use
  Company Number: CA-HIKMA PHARMACEUTICALS USA INC.-CA-H14001-23-65267

PATIENT
  Age: 50 Year
  Sex: Female
  Weight: 64 kg

DRUGS (2)
  1. SIMPONI [Suspect]
     Active Substance: GOLIMUMAB
     Indication: Rheumatoid arthritis
     Dosage: 50 MILLIGRAM, 3W
     Route: 058
  2. SODIUM CHLORIDE [Suspect]
     Active Substance: SODIUM CHLORIDE
     Indication: Product used for unknown indication
     Dosage: UNK
     Route: 065

REACTIONS (11)
  - Osteomyelitis [Recovering/Resolving]
  - Depressive symptom [Recovering/Resolving]
  - Inflammation [Recovering/Resolving]
  - Influenza [Recovering/Resolving]
  - Lower respiratory tract infection [Recovering/Resolving]
  - Oral candidiasis [Recovering/Resolving]
  - Rheumatoid arthritis [Recovering/Resolving]
  - Sinusitis [Recovering/Resolving]
  - Tooth loss [Recovering/Resolving]
  - Surgery [Recovering/Resolving]
  - Drug ineffective [Recovering/Resolving]
